FAERS Safety Report 6436295-2 (Version None)
Quarter: 2009Q4

REPORT INFORMATION
  Report Type: 
  Country: None (occurrence: None)
  Receive Date: 20091111
  Receipt Date: 20091110
  Transmission Date: 20100525
  Serious: Yes (Hospitalization)
  Sender: FDA-Public Use
  Company Number: A0816343A

PATIENT
  Age: 57 Year
  Sex: Male

DRUGS (1)
  1. AVANDIA [Suspect]
     Dosage: 8MG PER DAY
     Route: 048
     Dates: start: 19990101, end: 20080101

REACTIONS (5)
  - CARDIAC FAILURE [None]
  - MACULAR OEDEMA [None]
  - MYOCARDIAL INFARCTION [None]
  - RENAL FAILURE [None]
  - RENAL IMPAIRMENT [None]
